FAERS Safety Report 5071670-2 (Version None)
Quarter: 2006Q3

REPORT INFORMATION
  Report Type: 
  Country: None (occurrence: None)
  Receive Date: 20060801
  Receipt Date: 20060719
  Transmission Date: 20061208
  Serious: Yes (Life-Threatening, Other)
  Sender: FDA-Public Use
  Company Number: 2005094719

PATIENT
  Age: 51 Year
  Sex: Female

DRUGS (4)
  1. AROMASIN [Suspect]
     Indication: BREAST CANCER
     Dosage: 25 MG (25 MG, 1 IN1 D), ORAL
     Route: 048
     Dates: start: 20041126, end: 20050614
  2. NORVASC [Concomitant]
  3. DIOVAN [Concomitant]
  4. URSO 250 [Concomitant]

REACTIONS (2)
  - MYELOPROLIFERATIVE DISORDER [None]
  - POLYCYTHAEMIA [None]
